FAERS Safety Report 6680094-3 (Version None)
Quarter: 2010Q2

REPORT INFORMATION
  Report Type: 
  Country: None (occurrence: None)
  Receive Date: 20100413
  Receipt Date: 20100331
  Transmission Date: 20101027
  Serious: Yes (Hospitalization)
  Sender: FDA-Public Use
  Company Number: PHHY2010DE13650

PATIENT
  Sex: Female

DRUGS (4)
  1. CALCITONIN SALMON [Suspect]
     Indication: LUMBAR VERTEBRAL FRACTURE
     Dosage: 1-2 PUFFS PER DAY
     Dates: end: 20100301
  2. TRAMADOL HCL [Suspect]
     Indication: PAIN
     Dosage: 200 MG PER DAY
  3. LANICOR [Concomitant]
     Route: 048
  4. DIOVAN [Concomitant]
     Dosage: 80 MG, UNK

REACTIONS (4)
  - CONSTIPATION [None]
  - HYPERCHLORHYDRIA [None]
  - NAUSEA [None]
  - VOMITING [None]
